FAERS Safety Report 19163807 (Version 4)
Quarter: 2023Q4

REPORT INFORMATION
  Report Type: Spontaneous
  Country: US (occurrence: US)
  Receive Date: 20210421
  Receipt Date: 20231221
  Transmission Date: 20240110
  Serious: Yes (Disabling)
  Sender: FDA-Public Use
  Company Number: US-PFIZER INC-2021401742

PATIENT
  Age: 58 Year
  Sex: Female

DRUGS (6)
  1. XELJANZ XR [Suspect]
     Active Substance: TOFACITINIB CITRATE
     Dosage: 11 MG, 1X/DAY
     Route: 048
  2. AMLODIPINE [Concomitant]
     Active Substance: AMLODIPINE BESYLATE
     Dosage: UNK
  3. FOSAMAX [Concomitant]
     Active Substance: ALENDRONATE SODIUM
     Dosage: UNK
  4. RELAFEN [Concomitant]
     Active Substance: NABUMETONE
     Dosage: UNK
  5. FOLIC ACID [Concomitant]
     Active Substance: FOLIC ACID
     Dosage: UNK
  6. CHLORTHALIDONE [Concomitant]
     Active Substance: CHLORTHALIDONE
     Dosage: UNK

REACTIONS (5)
  - Pain [Unknown]
  - Pain in extremity [Unknown]
  - Gait disturbance [Unknown]
  - Back pain [Unknown]
  - Hepatic enzyme increased [Unknown]
